FAERS Safety Report 14552857 (Version 1)
Quarter: 2018Q1

REPORT INFORMATION
  Report Type: Spontaneous
  Country: AU (occurrence: CA)
  Receive Date: 20180220
  Receipt Date: 20180220
  Transmission Date: 20180509
  Serious: Yes (Hospitalization, Other)
  Sender: FDA-Public Use
  Company Number: AU-BAYER-2018-031386

PATIENT
  Age: 53 Year
  Sex: Female

DRUGS (7)
  1. MACROGOL 3350 [Suspect]
     Active Substance: POLYETHYLENE GLYCOL 3350
     Dosage: 1 DF, UNK
  2. POTASSIUM CHLORIDE. [Concomitant]
     Active Substance: POTASSIUM CHLORIDE
  3. LAXATIVE [Suspect]
     Active Substance: UNSPECIFIED INGREDIENT
     Dosage: UNK
  4. CHLORTHALIDONE. [Suspect]
     Active Substance: CHLORTHALIDONE
  5. IRBESARTAN. [Concomitant]
     Active Substance: IRBESARTAN
  6. ATENOLOL. [Concomitant]
     Active Substance: ATENOLOL
  7. DENOSUMAB [Concomitant]
     Active Substance: DENOSUMAB
     Indication: OSTEOPOROSIS POSTMENOPAUSAL
     Dosage: UNK

REACTIONS (6)
  - Generalised tonic-clonic seizure [Recovered/Resolved]
  - Product use in unapproved indication [None]
  - Hyponatraemia [Recovered/Resolved]
  - Rhabdomyolysis [Recovered/Resolved]
  - Off label use [None]
  - Brain oedema [Recovered/Resolved]
